FAERS Safety Report 21239743 (Version 1)
Quarter: 2022Q3

REPORT INFORMATION
  Report Type: Spontaneous
  Country: CN (occurrence: CN)
  Receive Date: 20220822
  Receipt Date: 20220822
  Transmission Date: 20221027
  Serious: Yes (Other)
  Sender: FDA-Public Use
  Company Number: CN-HALEON-CNCH2022APC029610

PATIENT

DRUGS (2)
  1. IBUPROFEN [Suspect]
     Active Substance: IBUPROFEN
     Indication: Arthritis
     Dosage: 1 DF, BID
     Route: 048
     Dates: start: 20220805, end: 20220805
  2. IBUPROFEN [Suspect]
     Active Substance: IBUPROFEN
     Indication: Neck pain

REACTIONS (11)
  - Anaphylactic shock [Recovering/Resolving]
  - Pruritus [Recovering/Resolving]
  - Cyanosis [Recovering/Resolving]
  - Restlessness [Recovering/Resolving]
  - Pallor [Recovering/Resolving]
  - Cold sweat [Recovering/Resolving]
  - Lip swelling [Recovering/Resolving]
  - Eyelid oedema [Recovering/Resolving]
  - Hypopnoea [Recovering/Resolving]
  - Breath sounds [Recovering/Resolving]
  - Rash erythematous [Recovering/Resolving]

NARRATIVE: CASE EVENT DATE: 20220805
